FAERS Safety Report 8237309-X (Version None)
Quarter: 2012Q1

REPORT INFORMATION
  Report Type: 
  Country: None (occurrence: None)
  Receive Date: 20120327
  Receipt Date: 20120321
  Transmission Date: 20120608
  Serious: Yes (Life-Threatening, Hospitalization, Other)
  Sender: FDA-Public Use
  Company Number: US-BRISTOL-MYERS SQUIBB COMPANY-16468274

PATIENT
  Age: 70 Year
  Sex: Male
  Weight: 83 kg

DRUGS (15)
  1. METOPROLOL SUCCINATE [Concomitant]
  2. VITAMIN D [Concomitant]
  3. YERVOY [Suspect]
     Dosage: NO OF DOSE:1 YERVOY INFUSION
     Dates: start: 20111201
  4. ALBUTEROL [Concomitant]
  5. ZOCOR [Concomitant]
  6. FLOMAX [Concomitant]
  7. LASIX [Concomitant]
  8. PRILOSEC [Concomitant]
  9. SYMBICORT [Concomitant]
  10. MULTI-VITAMIN [Concomitant]
  11. FOSINOPRIL SODIUM [Concomitant]
  12. OSTEO BI-FLEX [Concomitant]
     Indication: ARTHROPATHY
  13. NITROGLYCERIN [Concomitant]
     Dosage: PILL
  14. PREDNISONE TAB [Concomitant]
  15. SPIRIVA [Concomitant]

REACTIONS (4)
  - MYOCARDIAL INFARCTION [None]
  - MEMORY IMPAIRMENT [None]
  - PLATELET COUNT DECREASED [None]
  - HAEMATOCHEZIA [None]
